FAERS Safety Report 17536149 (Version 1)
Quarter: 2020Q1

REPORT INFORMATION
  Report Type: Spontaneous
  Country: US (occurrence: US)
  Receive Date: 20200313
  Receipt Date: 20200313
  Transmission Date: 20200409
  Serious: Yes (Other)
  Sender: FDA-Public Use
  Company Number: US-CIPLA LTD.-2020US01604

PATIENT

DRUGS (2)
  1. DICLOFENAC [Suspect]
     Active Substance: DICLOFENAC
     Indication: PRODUCT USED FOR UNKNOWN INDICATION
     Dosage: UNK
     Route: 061
  2. DICLOFENAC [Suspect]
     Active Substance: DICLOFENAC
     Dosage: UNK, 5-6 TIMES, ALL DAY
     Route: 061
     Dates: start: 202003

REACTIONS (3)
  - Tinnitus [Recovered/Resolved]
  - Hypertension [Recovering/Resolving]
  - Wrong dose [Unknown]

NARRATIVE: CASE EVENT DATE: 202003
